FAERS Safety Report 8816405 (Version 1)
Quarter: 2012Q4

REPORT INFORMATION
  Report Type: Spontaneous
  Country: FR (occurrence: None)
  Receive Date: 20120927
  Receipt Date: 20120927
  Transmission Date: 20130627
  Serious: Yes (Other)
  Sender: FDA-Public Use
  Company Number: 1419811

PATIENT
  Age: 74 Year
  Sex: Male

DRUGS (2)
  1. OXALIPLATIN [Suspect]
     Indication: COLORECTAL CANCER
     Route: 041
     Dates: start: 20120704, end: 20120704
  2. BEVACIZUMAB [Concomitant]

REACTIONS (4)
  - Skin warm [None]
  - Pruritus [None]
  - Erythema [None]
  - Malaise [None]
